FAERS Safety Report 15188507 (Version 1)
Quarter: 2018Q3

REPORT INFORMATION
  Report Type: Other
  Country: CA (occurrence: CA)
  Receive Date: 20180724
  Receipt Date: 20180724
  Transmission Date: 20181010
  Serious: Yes (Hospitalization, Other)
  Sender: FDA-Public Use
  Company Number: CA-APOTEX-2018AP017363

PATIENT
  Age: 76 Year
  Sex: Female

DRUGS (1)
  1. RISPERIDONE. [Suspect]
     Active Substance: RISPERIDONE
     Indication: DELIRIUM
     Dosage: UNK
     Route: 065

REACTIONS (3)
  - Product use in unapproved indication [Recovering/Resolving]
  - Off label use [Recovering/Resolving]
  - Electrocardiogram QT prolonged [Recovering/Resolving]
